FAERS Safety Report 5452094-2 (Version None)
Quarter: 2007Q3

REPORT INFORMATION
  Report Type: 
  Country: None (occurrence: None)
  Receive Date: 20070803
  Receipt Date: 20060925
  Transmission Date: 20080115
  Serious: Yes (Other)
  Sender: FDA-Public Use
  Company Number: 2006-08-0457

PATIENT
  Age: 76 Year
  Sex: Female
  Weight: 59.8748 kg

DRUGS (11)
  1. INTRON A [Suspect]
     Indication: MALIGNANT MELANOMA STAGE III
     Dosage: 34 MIU; IV;  15 MIU; TIW; SC
     Route: 042
     Dates: start: 20060213, end: 20060310
  2. INTRON A [Suspect]
     Indication: MALIGNANT MELANOMA STAGE III
     Dosage: 34 MIU; IV;  15 MIU; TIW; SC
     Route: 042
     Dates: start: 20060313, end: 20060612
  3. ASPIRIN [Concomitant]
  4. ACTONEL [Concomitant]
  5. LASIX [Concomitant]
  6. LOPRESSOR [Concomitant]
  7. VICODIN [Concomitant]
  8. XANAX [Concomitant]
  9. TYLENOL (CAPLET) [Concomitant]
  10. ZOFRAN [Concomitant]
  11. ELAVIL [Concomitant]

REACTIONS (6)
  - ANAEMIA [None]
  - CARDIAC FAILURE CONGESTIVE [None]
  - CARDIOMYOPATHY [None]
  - CONSTIPATION [None]
  - NAUSEA [None]
  - STOMATITIS [None]
